FAERS Safety Report 9693853 (Version 1)
Quarter: 2013Q4

REPORT INFORMATION
  Report Type: Spontaneous
  Country: US (occurrence: US)
  Receive Date: 20131118
  Receipt Date: 20131118
  Transmission Date: 20140711
  Serious: Yes (Other)
  Sender: FDA-Public Use
  Company Number: CHPA2013US017168

PATIENT
  Sex: Female

DRUGS (4)
  1. EX-LAX REG STR CHOCOLATED LAX PCS SEN [Suspect]
     Indication: WEIGHT CONTROL
     Dosage: UNK, ONCE OR TWICE A WEEK
     Route: 048
  2. EX-LAX REG STR CHOCOLATED LAX PCS SEN [Suspect]
     Indication: OFF LABEL USE
  3. EX-LAX MAX STR LAX PILLS SENNA [Suspect]
     Indication: WEIGHT CONTROL
     Dosage: UNK, ONCE OR TWICE A WEEK
     Route: 048
  4. EX-LAX MAX STR LAX PILLS SENNA [Suspect]
     Indication: OFF LABEL USE

REACTIONS (2)
  - Intentional drug misuse [Unknown]
  - Abdominal discomfort [Not Recovered/Not Resolved]
